FAERS Safety Report 5020866-4 (Version None)
Quarter: 2006Q2

REPORT INFORMATION
  Report Type: 
  Country: None (occurrence: None)
  Receive Date: 20060414
  Receipt Date: 20051129
  Transmission Date: 20061013
  Serious: Yes (Other)
  Sender: FDA-Public Use
  Company Number: US-JNJFOC-20051004376

PATIENT
  Age: 17 Year
  Sex: Male
  Weight: 65.7716 kg

DRUGS (1)
  1. ULTRAM [Suspect]
     Indication: SPINAL FUSION SURGERY
     Dosage: 1-2 EVERY 6 HOURS
     Dates: start: 20050928, end: 20050929

REACTIONS (1)
  - CONVULSION [None]
